FAERS Safety Report 13497720 (Version 5)
Quarter: 2017Q3

REPORT INFORMATION
  Report Type: Report from Study
  Country: US (occurrence: US)
  Receive Date: 20170428
  Receipt Date: 20170918
  Transmission Date: 20171127
  Serious: Yes (Death, Life-Threatening, Hospitalization, Other)
  Sender: FDA-Public Use
  Company Number: PHHO2017US007255

PATIENT
  Age: 78 Year
  Sex: Male
  Weight: 111.57 kg

DRUGS (11)
  1. COREG [Concomitant]
     Active Substance: CARVEDILOL
     Indication: CORONARY ARTERY DISEASE
     Dosage: 25 MG, BID
     Route: 048
     Dates: start: 20170116
  2. ENTRESTO [Suspect]
     Active Substance: SACUBITRIL\VALSARTAN
     Indication: CARDIAC FAILURE
     Dosage: 24/26 MG BID
     Route: 048
     Dates: start: 20170220, end: 20170305
  3. ENTRESTO [Suspect]
     Active Substance: SACUBITRIL\VALSARTAN
     Dosage: 49/51 MG BID
     Route: 048
     Dates: start: 20170306, end: 20170319
  4. COREG [Concomitant]
     Active Substance: CARVEDILOL
     Indication: CARDIAC FAILURE
     Dosage: 3.125 MG, BID
     Route: 048
     Dates: start: 20170506, end: 20170720
  5. BUMEX [Concomitant]
     Active Substance: BUMETANIDE
     Indication: CARDIAC FAILURE CONGESTIVE
     Dosage: 1 MG, QD
     Route: 048
     Dates: start: 20170120
  6. BUMEX [Concomitant]
     Active Substance: BUMETANIDE
     Dosage: 1 MG, QD
     Route: 048
     Dates: start: 20170515, end: 20170720
  7. ENTRESTO [Suspect]
     Active Substance: SACUBITRIL\VALSARTAN
     Dosage: 97/103 MG BID
     Route: 048
     Dates: start: 20170320, end: 20170420
  8. FAMOTIDINE. [Concomitant]
     Active Substance: FAMOTIDINE
     Indication: GASTROOESOPHAGEAL REFLUX DISEASE
     Dosage: 40 MG, QD
     Route: 048
     Dates: start: 20131123, end: 20170428
  9. PLAVIX [Suspect]
     Active Substance: CLOPIDOGREL BISULFATE
     Indication: CORONARY ARTERY DISEASE
     Dosage: 75 MG, QD
     Route: 048
     Dates: start: 20091130, end: 20170428
  10. ACETYLSALICYLIC ACID [Suspect]
     Active Substance: ASPIRIN
     Indication: CORONARY ARTERY DISEASE
     Dosage: 81 MG, QD
     Route: 048
     Dates: start: 20091024, end: 20170428
  11. RANEXA [Concomitant]
     Active Substance: RANOLAZINE
     Indication: CORONARY ARTERY DISEASE
     Dosage: 500 MG, BID
     Route: 048
     Dates: start: 20170120

REACTIONS (4)
  - Ventricular fibrillation [Recovered/Resolved]
  - Gastrointestinal haemorrhage [Recovered/Resolved]
  - Respiratory failure [Fatal]
  - Cardiac failure acute [Fatal]

NARRATIVE: CASE EVENT DATE: 20170421
